FAERS Safety Report 5685222-4 (Version None)
Quarter: 2008Q1

REPORT INFORMATION
  Report Type: 
  Country: None (occurrence: None)
  Receive Date: 20080328
  Receipt Date: 20080318
  Transmission Date: 20080703
  Serious: Yes (Other)
  Sender: FDA-Public Use
  Company Number: IT-ELI_LILLY_AND_COMPANY-IT200803004738

PATIENT
  Sex: Male

DRUGS (8)
  1. CYMBALTA [Suspect]
     Indication: MAJOR DEPRESSION
     Dosage: 60 MG, DAILY (1/D)
     Route: 048
     Dates: start: 20080220, end: 20080306
  2. ASPIRIN [Concomitant]
     Indication: THROMBOSIS PROPHYLAXIS
     Dosage: 100 MG, UNKNOWN
     Route: 048
     Dates: start: 20060501
  3. CARVEDILOL [Concomitant]
     Indication: CARDIAC FAILURE ACUTE
     Dosage: 12.5 MG, UNKNOWN
     Route: 048
     Dates: start: 20060501
  4. SIVASTIN [Concomitant]
     Indication: CARDIOVASCULAR EVENT PROPHYLAXIS
     Dosage: 20 MG, UNKNOWN
     Route: 048
     Dates: start: 20060501
  5. DRAMION [Concomitant]
     Dosage: 30 MG, UNKNOWN
     Route: 048
     Dates: start: 20060501
  6. LANSOX [Concomitant]
     Indication: PROPHYLAXIS AGAINST GASTROINTESTINAL ULCER
     Dosage: 15 MG, UNKNOWN
     Route: 048
     Dates: start: 20060501
  7. LASIX [Concomitant]
     Indication: HYPERTENSION
  8. CITALOPRAM [Concomitant]
     Indication: MAJOR DEPRESSION
     Dosage: 10 MG, UNKNOWN
     Route: 048

REACTIONS (3)
  - FALL [None]
  - LOSS OF CONSCIOUSNESS [None]
  - TRAUMATIC BRAIN INJURY [None]
